FAERS Safety Report 14664879 (Version 1)
Quarter: 2018Q1

REPORT INFORMATION
  Report Type: Spontaneous
  Country: IT (occurrence: IT)
  Receive Date: 20180321
  Receipt Date: 20180321
  Transmission Date: 20180509
  Serious: Yes (Hospitalization)
  Sender: FDA-Public Use
  Company Number: IT-SA-2018SA079784

PATIENT
  Age: 38 Year
  Sex: Male
  Weight: 100 kg

DRUGS (8)
  1. AMOXICILLIN (SALT NOT SPECIFIED) [Suspect]
     Active Substance: AMOXICILLIN
     Indication: TOOTHACHE
     Route: 065
  2. TAZOBACTAM/PIPERACILLIN [Suspect]
     Active Substance: PIPERACILLIN SODIUM\TAZOBACTAM SODIUM
     Dosage: TAZOBACTAM (2 G/DAY)/PIPERACILLIN (16 G/DAY)
     Route: 065
  3. LINEZOLID. [Suspect]
     Active Substance: LINEZOLID
     Indication: MEDIASTINITIS
     Route: 065
  4. TIGECYCLINE. [Suspect]
     Active Substance: TIGECYCLINE
     Indication: MEDIASTINITIS
     Route: 065
  5. AMOXICILLIN (SALT NOT SPECIFIED) [Suspect]
     Active Substance: AMOXICILLIN
     Indication: TOOTH INFECTION
     Route: 065
  6. MEROPENEM. [Suspect]
     Active Substance: MEROPENEM
     Route: 065
  7. RIFAMPICIN [Suspect]
     Active Substance: RIFAMPIN
     Indication: MEDIASTINITIS
     Route: 065
  8. COLISTIN [Suspect]
     Active Substance: COLISTIN
     Indication: MEDIASTINITIS
     Route: 065

REACTIONS (36)
  - Tooth infection [Recovering/Resolving]
  - Pallor [Recovering/Resolving]
  - Haemoglobin decreased [Recovering/Resolving]
  - Acute kidney injury [Recovering/Resolving]
  - Cardiac output decreased [Recovering/Resolving]
  - Condition aggravated [Recovering/Resolving]
  - Bacterial infection [Recovering/Resolving]
  - Respiratory failure [Recovering/Resolving]
  - White blood cell count increased [Recovering/Resolving]
  - Procalcitonin increased [Recovered/Resolved]
  - Vascular resistance systemic decreased [Recovering/Resolving]
  - Dyspnoea [Recovering/Resolving]
  - Mediastinal abscess [Recovering/Resolving]
  - Breath sounds abnormal [Recovering/Resolving]
  - Abscess oral [Recovering/Resolving]
  - Septic shock [Recovering/Resolving]
  - Haematocrit decreased [Recovering/Resolving]
  - Platelet count decreased [Recovering/Resolving]
  - Blood creatinine increased [Recovering/Resolving]
  - Blood urea increased [Recovering/Resolving]
  - Neck mass [Recovering/Resolving]
  - Dental necrosis [Recovering/Resolving]
  - Pleural effusion [Recovering/Resolving]
  - Hypotension [Recovering/Resolving]
  - Red blood cell count decreased [Recovering/Resolving]
  - Mediastinitis [Recovering/Resolving]
  - Lung abscess [Recovering/Resolving]
  - Wheezing [Recovering/Resolving]
  - Drug ineffective [Unknown]
  - Heart rate increased [Recovering/Resolving]
  - Body temperature increased [Recovered/Resolved]
  - Oedema peripheral [Recovering/Resolving]
  - Pathogen resistance [Unknown]
  - Mean arterial pressure decreased [Recovered/Resolved]
  - C-reactive protein increased [Recovered/Resolved]
  - Blood lactic acid increased [Recovering/Resolving]
